FAERS Safety Report 10084728 (Version 1)
Quarter: 2014Q2

REPORT INFORMATION
  Report Type: Report from Study
  Country: JP (occurrence: JP)
  Receive Date: 20140417
  Receipt Date: 20140417
  Transmission Date: 20141212
  Serious: Yes (Hospitalization)
  Sender: FDA-Public Use
  Company Number: JP-GLAXOSMITHKLINE-B0985209A

PATIENT
  Age: 67 Year
  Sex: Female

DRUGS (4)
  1. TYKERB [Suspect]
     Indication: BREAST CANCER
     Route: 048
     Dates: start: 20130209, end: 20130907
  2. XELODA [Suspect]
     Indication: BREAST CANCER
     Route: 048
     Dates: start: 20130209, end: 20130907
  3. LENDORMIN [Concomitant]
     Route: 048
  4. TAKEPRON [Concomitant]
     Route: 065

REACTIONS (1)
  - Cellulitis [Recovered/Resolved]
